FAERS Safety Report 13135237 (Version 2)
Quarter: 2017Q1

REPORT INFORMATION
  Report Type: Report from Study
  Country: NL (occurrence: NL)
  Receive Date: 20170120
  Receipt Date: 20170221
  Transmission Date: 20170428
  Serious: Yes (Hospitalization)
  Sender: FDA-Public Use
  Company Number: NL-AMGEN-NLDSL2017007928

PATIENT
  Age: 57 Year
  Sex: Female

DRUGS (2)
  1. XGEVA [Suspect]
     Active Substance: DENOSUMAB
     Dosage: UNK
     Route: 058
  2. XGEVA [Suspect]
     Active Substance: DENOSUMAB
     Indication: PROPHYLAXIS
     Dosage: 120 MG IN 1,70 ML, Q4WK
     Route: 058

REACTIONS (3)
  - Intentional product misuse [Unknown]
  - Blood calcium increased [Not Recovered/Not Resolved]
  - Blood potassium increased [Unknown]

NARRATIVE: CASE EVENT DATE: 20170109
